FAERS Safety Report 8782156 (Version 1)
Quarter: 2012Q4

REPORT INFORMATION
  Report Type: 
  Country: US (occurrence: US)
  Receive Date: 20120913
  Receipt Date: 20120913
  Transmission Date: 20130627
  Serious: No
  Sender: FDA-Public Use
  Company Number: US-ASTRAZENECA-2012SE60606

PATIENT
  Age: 78 Year
  Sex: Female

DRUGS (1)
  1. FASLODEX [Suspect]
     Indication: BREAST CANCER
     Route: 030
     Dates: start: 20120713

REACTIONS (9)
  - Hearing impaired [Unknown]
  - Bone pain [Unknown]
  - Musculoskeletal pain [Unknown]
  - Chromaturia [Unknown]
  - Blood alkaline phosphatase increased [Unknown]
  - Alanine aminotransferase increased [Unknown]
  - Headache [Unknown]
  - Fatigue [Unknown]
  - Aspartate aminotransferase increased [Unknown]
